FAERS Safety Report 15221324 (Version 1)
Quarter: 2018Q3

REPORT INFORMATION
  Report Type: Spontaneous
  Country: GB (occurrence: GB)
  Receive Date: 20180731
  Receipt Date: 20180731
  Transmission Date: 20181010
  Serious: Yes (Hospitalization)
  Sender: FDA-Public Use
  Company Number: GB-DRREDDYS-GER/UKI/18/0102509

PATIENT
  Age: 60 Year
  Sex: Female

DRUGS (11)
  1. DULOXETINE. [Suspect]
     Active Substance: DULOXETINE
     Indication: PAIN
     Route: 048
     Dates: start: 2013, end: 20180617
  2. MORPHINE SULFATE. [Concomitant]
     Active Substance: MORPHINE SULFATE
     Indication: PRODUCT USED FOR UNKNOWN INDICATION
  3. CLOPIDOGREL [Concomitant]
     Active Substance: CLOPIDOGREL BISULFATE
     Indication: PRODUCT USED FOR UNKNOWN INDICATION
  4. PARACETAMOL [Concomitant]
     Active Substance: ACETAMINOPHEN
     Indication: PRODUCT USED FOR UNKNOWN INDICATION
  5. OXYBUTYNIN HYDROCHLORIDE [Concomitant]
     Active Substance: OXYBUTYNIN CHLORIDE
     Indication: PRODUCT USED FOR UNKNOWN INDICATION
     Route: 065
  6. DOCUSATE [Concomitant]
     Active Substance: DOCUSATE
     Indication: PRODUCT USED FOR UNKNOWN INDICATION
  7. OMEPRAZOLE. [Concomitant]
     Active Substance: OMEPRAZOLE
     Indication: PRODUCT USED FOR UNKNOWN INDICATION
     Route: 065
  8. FENTANYL. [Suspect]
     Active Substance: FENTANYL
     Indication: PAIN
     Dates: start: 2013, end: 20180618
  9. AMITRIPTYLINE HYDROCHLORIDE. [Suspect]
     Active Substance: AMITRIPTYLINE HYDROCHLORIDE
     Indication: PAIN
     Dosage: AT NIGHT
     Route: 048
     Dates: start: 2016, end: 20180618
  10. ATORVASTATIN [Concomitant]
     Active Substance: ATORVASTATIN
     Indication: PRODUCT USED FOR UNKNOWN INDICATION
  11. MEBEVERINE [Concomitant]
     Active Substance: MEBEVERINE
     Indication: PRODUCT USED FOR UNKNOWN INDICATION

REACTIONS (8)
  - Lagophthalmos [Unknown]
  - Hypertonia [Unknown]
  - Hyperhidrosis [Unknown]
  - Heart rate increased [Unknown]
  - Serotonin syndrome [Recovered/Resolved]
  - Hyperreflexia [Unknown]
  - Clonus [Unknown]
  - Pyrexia [Unknown]

NARRATIVE: CASE EVENT DATE: 20180617
